FAERS Safety Report 25806524 (Version 2)
Quarter: 2025Q3

REPORT INFORMATION
  Report Type: Report from Study
  Country: IN (occurrence: IN)
  Receive Date: 20250916
  Receipt Date: 20250926
  Transmission Date: 20251020
  Serious: Yes (Hospitalization, Other)
  Sender: EMD SERONO INC
  Company Number: IN-Merck Healthcare KGaA-2025046099

PATIENT
  Age: 61 Year
  Sex: Male

DRUGS (2)
  1. BAVENCIO [Suspect]
     Active Substance: AVELUMAB
     Indication: Transitional cell carcinoma
     Dates: start: 20250721
  2. SODIUM CHLORIDE [Concomitant]
     Active Substance: SODIUM CHLORIDE
     Indication: Product used for unknown indication
     Dosage: OVER 1 HOUR

REACTIONS (11)
  - Tinnitus [Unknown]
  - Skin burning sensation [Unknown]
  - Syncope [Unknown]
  - Chest discomfort [Unknown]
  - Muscle spasms [Unknown]
  - Dyspnoea [Unknown]
  - Chills [Unknown]
  - Nasopharyngitis [Unknown]
  - Vomiting [Unknown]
  - Asthenia [Unknown]
  - Off label use [Unknown]

NARRATIVE: CASE EVENT DATE: 20250902
